FAERS Safety Report 15499880 (Version 5)
Quarter: 2019Q2

REPORT INFORMATION
  Report Type: Spontaneous
  Country: IT (occurrence: IT)
  Receive Date: 20181015
  Receipt Date: 20190420
  Transmission Date: 20190711
  Serious: Yes (Life-Threatening, Hospitalization, Other)
  Sender: FDA-Public Use
  Company Number: PHHY2018IT121805

PATIENT
  Age: 75 Year
  Sex: Female

DRUGS (2)
  1. METFORMIN [Suspect]
     Active Substance: METFORMIN HYDROCHLORIDE
     Indication: STEROID DIABETES
  2. METFORMIN [Suspect]
     Active Substance: METFORMIN HYDROCHLORIDE
     Indication: DIABETES MELLITUS
     Dosage: 1800 MG, QD
     Route: 065

REACTIONS (18)
  - Haemodynamic instability [Unknown]
  - Toxicity to various agents [Unknown]
  - Metabolic acidosis [Recovered/Resolved]
  - Hypoglycaemia [Unknown]
  - Nutritional condition abnormal [Unknown]
  - Blood potassium increased [Unknown]
  - Respiratory failure [Unknown]
  - Diarrhoea [Unknown]
  - Lactic acidosis [Recovered/Resolved]
  - Dyspnoea [Unknown]
  - Renal failure [Recovered/Resolved]
  - Hypotension [Unknown]
  - Bronchospasm [Recovered/Resolved]
  - Influenza [Unknown]
  - Blood creatinine increased [Unknown]
  - Dehydration [Unknown]
  - Azotaemia [Unknown]
  - Anuria [Unknown]
